FAERS Safety Report 8056332-1 (Version None)
Quarter: 2012Q1

REPORT INFORMATION
  Report Type: 
  Country: None (occurrence: None)
  Receive Date: 20120119
  Receipt Date: 20120109
  Transmission Date: 20120608
  Serious: Yes (Hospitalization)
  Sender: FDA-Public Use
  Company Number: US-ELI_LILLY_AND_COMPANY-US201201001459

PATIENT
  Sex: Female

DRUGS (1)
  1. FORTEO [Suspect]
     Indication: OSTEOPOROSIS
     Dosage: 20 UG, QD
     Dates: start: 20111216, end: 20120106

REACTIONS (8)
  - LUMBAR VERTEBRAL FRACTURE [None]
  - DECREASED APPETITE [None]
  - MALAISE [None]
  - FATIGUE [None]
  - GAIT DISTURBANCE [None]
  - WEIGHT DECREASED [None]
  - EATING DISORDER [None]
  - GENERAL PHYSICAL CONDITION ABNORMAL [None]
